FAERS Safety Report 5868580-7 (Version None)
Quarter: 2008Q3

REPORT INFORMATION
  Report Type: 
  Country: None (occurrence: None)
  Receive Date: 20080828
  Receipt Date: 20080813
  Transmission Date: 20090109
  Serious: Yes (Other)
  Sender: FDA-Public Use
  Company Number: 2008AL006007

PATIENT
  Age: 71 Year
  Sex: Female
  Weight: 61.6892 kg

DRUGS (1)
  1. DIGOXIN [Suspect]
     Indication: ATRIAL FIBRILLATION
     Dosage: 0.25MG, DAILY, PO
     Route: 048

REACTIONS (3)
  - ARRHYTHMIA [None]
  - CARDIOACTIVE DRUG LEVEL INCREASED [None]
  - NAUSEA [None]
